FAERS Safety Report 9434285 (Version 1)
Quarter: 2013Q3

REPORT INFORMATION
  Report Type: Spontaneous
  Country: US (occurrence: None)
  Receive Date: 20130731
  Receipt Date: 20130731
  Transmission Date: 20140515
  Serious: No
  Sender: FDA-Public Use
  Company Number: None

PATIENT
  Age: 49 Year
  Sex: Female

DRUGS (1)
  1. ADVIL [Suspect]
     Indication: HEADACHE
     Dates: start: 20110525, end: 20110701

REACTIONS (4)
  - Drug-induced liver injury [None]
  - Haematemesis [None]
  - Gastrointestinal haemorrhage [None]
  - Blood bilirubin increased [None]
